FAERS Safety Report 25148881 (Version 2)
Quarter: 2025Q2

REPORT INFORMATION
  Report Type: Spontaneous
  Country: CA (occurrence: CA)
  Receive Date: 20250402
  Receipt Date: 20250410
  Transmission Date: 20250717
  Serious: Yes (Other)
  Sender: CELLTRION
  Company Number: CA-CELLTRION INC.-2025CA009466

PATIENT

DRUGS (5)
  1. STEQEYMA [Suspect]
     Active Substance: USTEKINUMAB-STBA
     Indication: Psoriasis
     Route: 058
     Dates: start: 20250128
  2. CELEBREX [Concomitant]
     Active Substance: CELECOXIB
  3. OLMESARTAN [Concomitant]
     Active Substance: OLMESARTAN
  4. ROSUVASTATIN [Concomitant]
     Active Substance: ROSUVASTATIN
  5. PANTO [PANTHENOL] [Concomitant]
     Active Substance: PANTHENOL

REACTIONS (2)
  - Skin lesion [Recovered/Resolved]
  - Intentional product use issue [Unknown]

NARRATIVE: CASE EVENT DATE: 20250211
